FAERS Safety Report 7909168-3 (Version None)
Quarter: 2011Q4

REPORT INFORMATION
  Report Type: 
  Country: None (occurrence: None)
  Receive Date: 20111111
  Receipt Date: 20110420
  Transmission Date: 20120403
  Serious: No
  Sender: FDA-Public Use
  Company Number: US-GLAXOSMITHKLINE-A0924450A

PATIENT

DRUGS (4)
  1. COREG [Suspect]
     Route: 065
     Dates: start: 20100101, end: 20110101
  2. UNSPECIFIED MEDICATIONS [Concomitant]
  3. COREG [Suspect]
     Route: 065
     Dates: end: 20090101
  4. CARVEDILOL [Suspect]
     Route: 065
     Dates: start: 20090101

REACTIONS (1)
  - CARDIAC DISORDER [None]
